FAERS Safety Report 25191696 (Version 1)
Quarter: 2025Q2

REPORT INFORMATION
  Report Type: Spontaneous
  Country: CN (occurrence: CN)
  Receive Date: 20250414
  Receipt Date: 20250414
  Transmission Date: 20250717
  Serious: Yes (Hospitalization, Disabling)
  Sender: DAIICHI
  Company Number: CN-DSJP-DS-2025-133851-CN

PATIENT
  Age: 40 Year
  Sex: Female
  Weight: 74 kg

DRUGS (4)
  1. ENHERTU [Suspect]
     Active Substance: FAM-TRASTUZUMAB DERUXTECAN-NXKI
     Indication: Chemotherapy
     Dosage: 380 MG, QD
     Route: 041
     Dates: start: 20250321, end: 20250321
  2. STERILE WATER [Concomitant]
     Active Substance: WATER
     Indication: Product used for unknown indication
     Dosage: 20 ML, QD
     Route: 041
     Dates: start: 20250321, end: 20250321
  3. DEXTROSE [Concomitant]
     Active Substance: DEXTROSE MONOHYDRATE
     Indication: Product used for unknown indication
     Dosage: 100 ML, QD
     Route: 041
     Dates: start: 20250321, end: 20250321
  4. GOSERELIN [Concomitant]
     Active Substance: GOSERELIN
     Indication: Chemotherapy
     Dosage: 3.6 MG, QD
     Route: 058
     Dates: start: 20250321, end: 20250321

REACTIONS (4)
  - White blood cell count decreased [Recovering/Resolving]
  - Platelet count decreased [Recovering/Resolving]
  - Neutrophil count decreased [Recovering/Resolving]
  - Pyrexia [Recovering/Resolving]

NARRATIVE: CASE EVENT DATE: 20250324
